APPROVED DRUG PRODUCT: OTOBIOTIC
Active Ingredient: HYDROCORTISONE; POLYMYXIN B SULFATE
Strength: 5MG/ML;EQ 10,000 UNITS BASE/ML
Dosage Form/Route: SOLUTION/DROPS;OTIC
Application: A062302 | Product #001
Applicant: SCHERING CORP SUB SCHERING PLOUGH CORP
Approved: Approved Prior to Jan 1, 1982 | RLD: No | RS: No | Type: DISCN